FAERS Safety Report 13541108 (Version 2)
Quarter: 2017Q2

REPORT INFORMATION
  Report Type: Spontaneous
  Country: US (occurrence: US)
  Receive Date: 20170512
  Receipt Date: 20170614
  Transmission Date: 20170830
  Serious: No
  Sender: FDA-Public Use
  Company Number: US-SHIRE-US201710658

PATIENT
  Age: 53 Year
  Sex: Female
  Weight: 63.49 kg

DRUGS (1)
  1. XIIDRA [Suspect]
     Active Substance: LIFITEGRAST
     Indication: DRY EYE
     Dosage: 1 DROP BOTH EYES, 2X/DAY:BID
     Route: 047
     Dates: start: 20170501

REACTIONS (3)
  - Product quality issue [Unknown]
  - Vision blurred [Not Recovered/Not Resolved]
  - Instillation site pain [Not Recovered/Not Resolved]

NARRATIVE: CASE EVENT DATE: 20170501
